FAERS Safety Report 8942304 (Version 3)
Quarter: 2013Q1

REPORT INFORMATION
  Report Type: Spontaneous
  Country: US (occurrence: None)
  Receive Date: 20121123
  Receipt Date: 20130115
  Transmission Date: 20140127
  Serious: Yes (Hospitalization, Other)
  Sender: FDA-Public Use
  Company Number: ADR-2012-02128

PATIENT
  Sex: Male

DRUGS (3)
  1. BACLOFEN [Suspect]
     Indication: PAIN
  2. BACLOFEN [Suspect]
  3. MORPHINE DRUG [Concomitant]

REACTIONS (15)
  - Drug ineffective [None]
  - Drug withdrawal syndrome [None]
  - Device leakage [None]
  - Somnolence [None]
  - Blood pressure abnormal [None]
  - Sepsis [None]
  - Sneezing [None]
  - Rhinorrhoea [None]
  - Pyrexia [None]
  - Implant site hypoaesthesia [None]
  - Sepsis [None]
  - Pain [None]
  - Device connection issue [None]
  - Device material issue [None]
  - Device damage [None]
